FAERS Safety Report 16983802 (Version 1)
Quarter: 2019Q4

REPORT INFORMATION
  Report Type: Report from Study
  Country: BR (occurrence: BR)
  Receive Date: 20191101
  Receipt Date: 20191101
  Transmission Date: 20200122
  Serious: Yes (Life-Threatening, Hospitalization, Other)
  Sender: FDA-Public Use
  Company Number: BR-JNJFOC-20191034642

PATIENT

DRUGS (2)
  1. INFLIXIMAB, RECOMBINANT [Suspect]
     Active Substance: INFLIXIMAB
     Indication: PSORIATIC ARTHROPATHY
     Route: 042
  2. INFLIXIMAB, RECOMBINANT [Suspect]
     Active Substance: INFLIXIMAB
     Indication: RHEUMATOID ARTHRITIS

REACTIONS (16)
  - Neuropathy peripheral [Unknown]
  - Metabolic disorder [Unknown]
  - Gastrointestinal disorder [Unknown]
  - Hypersensitivity [Unknown]
  - Opportunistic infection [Unknown]
  - Immune system disorder [Unknown]
  - Cytokine release syndrome [Unknown]
  - Headache [Unknown]
  - Apparent life threatening event [Unknown]
  - Systemic mycosis [Unknown]
  - Meningitis [Unknown]
  - Skin infection [Unknown]
  - Hospitalisation [Unknown]
  - Respiratory tract infection [Unknown]
  - Cardiovascular disorder [Unknown]
  - Urinary tract infection [Unknown]
